FAERS Safety Report 16024436 (Version 1)
Quarter: 2019Q1

REPORT INFORMATION
  Report Type: Spontaneous
  Country: PL (occurrence: PL)
  Receive Date: 20190301
  Receipt Date: 20190301
  Transmission Date: 20190418
  Serious: Yes (Death, Other)
  Sender: FDA-Public Use
  Company Number: PL-OTSUKA-2019_006126

PATIENT
  Age: 36 Year
  Sex: Female
  Weight: 68 kg

DRUGS (7)
  1. ABILIFY [Suspect]
     Active Substance: ARIPIPRAZOLE
     Indication: SCHIZOPHRENIA
     Dosage: 7.5 MG, QD (SECOND DOSE OF DRUG)
     Route: 030
     Dates: start: 20190117
  2. OLANZAPINA [Concomitant]
     Active Substance: OLANZAPINE
     Indication: SCHIZOPHRENIA
     Dosage: 10 MG, UNK
     Route: 048
  3. RELANIUM [Concomitant]
     Indication: SCHIZOPHRENIA
     Dosage: 20 MG, QD (MAX. 20 MG/24H)
     Route: 048
  4. RELANIUM [Concomitant]
     Dosage: 20 MG, QD (MAX. 20 MG/24H)
     Route: 030
  5. ZYPREXA [Concomitant]
     Active Substance: OLANZAPINE
     Indication: SCHIZOPHRENIA
     Dosage: 10 MG, UNK
     Route: 030
     Dates: start: 20190110, end: 20190116
  6. LORAFEN [Concomitant]
     Active Substance: LORAZEPAM
     Indication: SCHIZOPHRENIA
     Dosage: 2 MG, QD (MAX. 2MG/24H   )
     Route: 048
  7. RISPOLEPT [Concomitant]
     Active Substance: RISPERIDONE
     Indication: SCHIZOPHRENIA
     Dosage: 5 MG, QD
     Route: 048
     Dates: start: 20190108, end: 20190109

REACTIONS (1)
  - Cardiac arrest [Fatal]

NARRATIVE: CASE EVENT DATE: 20190117
